FAERS Safety Report 19495674 (Version 1)
Quarter: 2021Q3

REPORT INFORMATION
  Report Type: Spontaneous
  Country: CN (occurrence: CN)
  Receive Date: 20210706
  Receipt Date: 20210706
  Transmission Date: 20211014
  Serious: Yes (Other)
  Sender: FDA-Public Use
  Company Number: CN-ASPEN-GLO2021CN005365

PATIENT

DRUGS (8)
  1. THIOTEPA. [Suspect]
     Active Substance: THIOTEPA
     Indication: INFLAMMATORY BOWEL DISEASE
  2. BUSULFAN. [Suspect]
     Active Substance: BUSULFAN
     Indication: BONE MARROW CONDITIONING REGIMEN
     Dosage: UNK
     Route: 065
  3. FLUDARABINE [Suspect]
     Active Substance: FLUDARABINE PHOSPHATE
     Indication: BONE MARROW CONDITIONING REGIMEN
     Dosage: UNK
     Route: 065
  4. CYCLOPHOSPHAMIDE. [Suspect]
     Active Substance: CYCLOPHOSPHAMIDE
     Indication: BONE MARROW CONDITIONING REGIMEN
     Dosage: UNK
     Route: 065
  5. THIOTEPA. [Suspect]
     Active Substance: THIOTEPA
     Indication: BONE MARROW CONDITIONING REGIMEN
     Dosage: UNK
     Route: 065
  6. FLUDARABINE [Suspect]
     Active Substance: FLUDARABINE PHOSPHATE
     Indication: INFLAMMATORY BOWEL DISEASE
  7. CYCLOPHOSPHAMIDE. [Suspect]
     Active Substance: CYCLOPHOSPHAMIDE
     Indication: INFLAMMATORY BOWEL DISEASE
  8. BUSULFAN. [Suspect]
     Active Substance: BUSULFAN
     Indication: INFLAMMATORY BOWEL DISEASE

REACTIONS (14)
  - Inflammation [Unknown]
  - Face oedema [Unknown]
  - Rash [Unknown]
  - Platelet count decreased [Unknown]
  - Off label use [Unknown]
  - Pneumonitis [Unknown]
  - Cough [Unknown]
  - Hepatic function abnormal [Unknown]
  - Cardiac disorder [Unknown]
  - Electrolyte imbalance [Unknown]
  - Peripheral swelling [Unknown]
  - Pyrexia [Unknown]
  - Hypoproteinaemia [Unknown]
  - Diarrhoea [Unknown]
